FAERS Safety Report 4866174-3 (Version None)
Quarter: 2005Q4

REPORT INFORMATION
  Report Type: 
  Country: None (occurrence: None)
  Receive Date: 20051227
  Receipt Date: 20050525
  Transmission Date: 20060501
  Serious: Yes (Hospitalization, Other)
  Sender: FDA-Public Use
  Company Number: FR-BRISTOL-MYERS SQUIBB COMPANY-12982773

PATIENT
  Age: 32 Year
  Sex: Female
  Weight: 55 kg

DRUGS (4)
  1. REYATAZ [Suspect]
     Indication: HIV INFECTION
     Route: 048
     Dates: start: 20050216, end: 20050509
  2. REYATAZ [Suspect]
     Indication: ACQUIRED IMMUNODEFICIENCY SYNDROME
     Route: 048
     Dates: start: 20050216, end: 20050509
  3. INVIRASE [Concomitant]
     Dates: start: 20040617
  4. NORVIR [Concomitant]
     Dates: start: 20040617

REACTIONS (1)
  - TOXIC SKIN ERUPTION [None]
